FAERS Safety Report 17149770 (Version 3)
Quarter: 2020Q1

REPORT INFORMATION
  Report Type: Report from Study
  Country: CA (occurrence: CA)
  Receive Date: 20191213
  Receipt Date: 20200124
  Transmission Date: 20200409
  Serious: Yes (Hospitalization)
  Sender: FDA-Public Use
  Company Number: CA-ROCHE-2491919

PATIENT
  Sex: Female

DRUGS (1)
  1. OCREVUS [Suspect]
     Active Substance: OCRELIZUMAB
     Indication: PRIMARY PROGRESSIVE MULTIPLE SCLEROSIS
     Dosage: THEN 600 MG EVERY 6 MONTH
     Route: 042
     Dates: start: 20190115

REACTIONS (3)
  - Central nervous system infection [Unknown]
  - Diplopia [Unknown]
  - Paralysis [Unknown]
